FAERS Safety Report 7823553-X (Version None)
Quarter: 2011Q4

REPORT INFORMATION
  Report Type: 
  Country: None (occurrence: None)
  Receive Date: 20111014
  Receipt Date: 20111006
  Transmission Date: 20120403
  Serious: Yes (Hospitalization)
  Sender: FDA-Public Use
  Company Number: TPA2011A06346

PATIENT
  Age: 51 Year
  Sex: Male
  Weight: 88.4514 kg

DRUGS (4)
  1. ACTOPLUS MET [Suspect]
     Indication: TYPE 2 DIABETES MELLITUS
     Dosage: 15 MG/850 MG, 2 IN 1 D, PER ORAL; 1 IN 1 D, PER ORAL
     Route: 048
     Dates: start: 20090101
  2. ACTOPLUS MET [Suspect]
     Indication: TYPE 2 DIABETES MELLITUS
     Dosage: 15 MG/850 MG, 2 IN 1 D, PER ORAL; 1 IN 1 D, PER ORAL
     Route: 048
     Dates: start: 20050101, end: 20110101
  3. XANAX [Concomitant]
  4. UNKNOWN (NERVOUS SYSTEM) [Concomitant]

REACTIONS (2)
  - BLADDER CANCER [None]
  - WEIGHT INCREASED [None]
